FAERS Safety Report 4423421-X (Version None)
Quarter: 2004Q3

REPORT INFORMATION
  Report Type: 
  Country: None (occurrence: None)
  Receive Date: 20040806
  Receipt Date: 20040728
  Transmission Date: 20050211
  Serious: Yes (Death)
  Sender: FDA-Public Use
  Company Number: DE-JNJFOC-20040707661

PATIENT
  Age: 78 Year
  Sex: Male

DRUGS (13)
  1. LEVOFLOXACIN [Suspect]
     Indication: PNEUMONIA
     Dosage: INTRAVENOUS
     Route: 042
     Dates: start: 20040310, end: 20040312
  2. LEVOFLOXACIN (LEVOFLOXAIN) TABLETS [Suspect]
     Indication: PNEUMONIA
     Dosage: ORAL
     Route: 048
     Dates: start: 20040313, end: 20040319
  3. ROXICET [Concomitant]
  4. MS CONTIN [Concomitant]
  5. MORPHINE SULFATE [Concomitant]
  6. ALBUTEROL [Concomitant]
  7. ATROVENT [Concomitant]
  8. EMULOSE (LACTULOSE) [Concomitant]
  9. FLEET ENEMA (FLEET ENEMA) [Concomitant]
  10. SENNA S (SENNA) [Concomitant]
  11. OXYGEN (OXYGEN) [Concomitant]
  12. HYOSCYAMINE  (HYOSCYAMINE) [Concomitant]
  13. GLIPIZIDE [Concomitant]

REACTIONS (1)
  - CEREBROVASCULAR ACCIDENT [None]
